FAERS Safety Report 6356037-9 (Version None)
Quarter: 2009Q3

REPORT INFORMATION
  Report Type: 
  Country: None (occurrence: None)
  Receive Date: 20090910
  Receipt Date: 20090910
  Transmission Date: 20100115
  Serious: No
  Sender: FDA-Public Use
  Company Number: None

PATIENT
  Age: 44 Year
  Sex: Female
  Weight: 85.7298 kg

DRUGS (1)
  1. BENZONATATE [Suspect]
     Indication: COUGH
     Dosage: 1 3 TIMES DAILY PO
     Route: 048

REACTIONS (2)
  - PRODUCT CONTAMINATION [None]
  - PRODUCT ODOUR ABNORMAL [None]
